FAERS Safety Report 8822412 (Version 1)
Quarter: 2012Q4

REPORT INFORMATION
  Report Type: 
  Country: ZA (occurrence: ZA)
  Receive Date: 20121003
  Receipt Date: 20121003
  Transmission Date: 20130627
  Serious: Yes (Hospitalization)
  Sender: FDA-Public Use
  Company Number: ZA-SANOFI-AVENTIS-2012SA070498

PATIENT
  Age: 66 Year
  Sex: Female

DRUGS (5)
  1. LANTUS SOLOSTAR [Suspect]
     Indication: TYPE 2 DIABETES MELLITUS
     Dosage: Dose:50 unit(s)
     Route: 058
     Dates: start: 20110603
  2. SOLOSTAR [Suspect]
     Indication: DEVICE THERAPY
     Dates: start: 20110603
  3. APIDRA SOLOSTAR [Suspect]
     Indication: TYPE 2 DIABETES MELLITUS
     Dosage: Dose:10 unit(s)
     Route: 058
     Dates: start: 20110603
  4. SOLOSTAR [Suspect]
     Indication: DEVICE THERAPY
     Dates: start: 20110603
  5. METFORMIN [Concomitant]
     Indication: DIABETES
     Route: 048
     Dates: start: 1994

REACTIONS (1)
  - Shoulder operation [Recovered/Resolved]
